FAERS Safety Report 8621783-0 (Version None)
Quarter: 2012Q3

REPORT INFORMATION
  Report Type: 
  Country: None (occurrence: None)
  Receive Date: 20120822
  Receipt Date: 20120822
  Transmission Date: 20120928
  Serious: Yes (Other)
  Sender: FDA-Public Use
  Company Number: None

PATIENT
  Age: 45 Year
  Sex: Female

DRUGS (3)
  1. WELLBUTRIN SR [Concomitant]
  2. AMBIEN CR [Suspect]
     Indication: INSOMNIA
     Dosage: 12.5 MG QHSX1 WEEK, PO
     Route: 048
     Dates: start: 20090101
  3. ADDERALL [Concomitant]

REACTIONS (1)
  - ABNORMAL SLEEP-RELATED EVENT [None]
